FAERS Safety Report 8837327 (Version 3)
Quarter: 2012Q4

REPORT INFORMATION
  Report Type: 
  Country: JP (occurrence: JP)
  Receive Date: 20121012
  Receipt Date: 20121218
  Transmission Date: 20130627
  Serious: Yes (Death, Disabling)
  Sender: FDA-Public Use
  Company Number: JP-JNJFOC-20120912716

PATIENT
  Age: 8 None
  Sex: Female

DRUGS (2)
  1. ITRIZOLE [Suspect]
     Indication: ANTIFUNGAL PROPHYLAXIS
     Route: 048
     Dates: start: 20120924
  2. MOGAMULIZUMAB [Suspect]
     Indication: ADULT T-CELL LYMPHOMA/LEUKAEMIA
     Route: 041
     Dates: start: 20120925

REACTIONS (2)
  - Adult T-cell lymphoma/leukaemia [Fatal]
  - Peroneal nerve palsy [Not Recovered/Not Resolved]
